FAERS Safety Report 15880752 (Version 1)
Quarter: 2019Q1

REPORT INFORMATION
  Report Type: Spontaneous
  Country: FR (occurrence: FR)
  Receive Date: 20190128
  Receipt Date: 20190128
  Transmission Date: 20190417
  Serious: Yes (Hospitalization)
  Sender: FDA-Public Use
  Company Number: FR-MYLANLABS-2019M1006626

PATIENT
  Age: 79 Year
  Sex: Female
  Weight: 61.3 kg

DRUGS (3)
  1. PHYSIOTENS [Interacting]
     Active Substance: MOXONIDINE
     Indication: HYPERTENSION
     Dosage: 2 DOSAGE FORM, QD
     Route: 048
     Dates: end: 201805
  2. AMLODIPINE [Suspect]
     Active Substance: AMLODIPINE BESYLATE
     Indication: HYPERTENSION
     Dosage: 10 MILLIGRAM, QD
     Route: 048
     Dates: end: 201805
  3. MICARDIS [Interacting]
     Active Substance: TELMISARTAN
     Indication: HYPERTENSION
     Dosage: 1 DOSAGE FORM, QD
     Route: 048
     Dates: end: 201805

REACTIONS (2)
  - Drug interaction [Unknown]
  - Orthostatic hypotension [Recovering/Resolving]

NARRATIVE: CASE EVENT DATE: 20180525
